FAERS Safety Report 5140446-X (Version None)
Quarter: 2006Q4

REPORT INFORMATION
  Report Type: 
  Country: None (occurrence: None)
  Receive Date: 20061025
  Receipt Date: 20061010
  Transmission Date: 20070319
  Serious: Yes (Other)
  Sender: FDA-Public Use
  Company Number: 200610IM000574

PATIENT
  Age: 23 Year
  Sex: Male

DRUGS (3)
  1. ACTIMMUNE [Suspect]
     Indication: CHRONIC GRANULOMATOUS DISEASE
  2. BACTRIM [Concomitant]
  3. ITRACONAZOLE [Concomitant]

REACTIONS (1)
  - ASPERGILLOSIS [None]
